FAERS Safety Report 25169192 (Version 1)
Quarter: 2025Q2

REPORT INFORMATION
  Report Type: Report from Study
  Country: DE (occurrence: None)
  Receive Date: 20250407
  Receipt Date: 20250407
  Transmission Date: 20250716
  Serious: Yes (Other)
  Sender: ALEXION PHARMACEUTICALS
  Company Number: DE-ASTRAZENECA-202503GLO027413DE

PATIENT
  Age: 65 Year
  Weight: 60 kg

DRUGS (3)
  1. DURVALUMAB [Suspect]
     Active Substance: DURVALUMAB
     Indication: Hepatobiliary cancer
     Dosage: 1500 MILLIGRAM, Q3W
  2. GEMCITABINE [Suspect]
     Active Substance: GEMCITABINE
     Indication: Hepatobiliary cancer
     Dosage: 1180 MILLIGRAM, Q3W
  3. CISPLATIN [Suspect]
     Active Substance: CISPLATIN
     Indication: Hepatobiliary cancer
     Dosage: 21 MILLIGRAM, Q3W

REACTIONS (1)
  - Leukopenia [Recovered/Resolved]
